FAERS Safety Report 8128790-5 (Version None)
Quarter: 2012Q1

REPORT INFORMATION
  Report Type: 
  Country: None (occurrence: None)
  Receive Date: 20120210
  Receipt Date: 20110322
  Transmission Date: 20120608
  Serious: No
  Sender: FDA-Public Use
  Company Number: US-BRISTOL-MYERS SQUIBB COMPANY-15569221

PATIENT
  Age: 65 Year
  Sex: Female
  Weight: 56 kg

DRUGS (1)
  1. ORENCIA [Suspect]
     Indication: RHEUMATOID ARTHRITIS
     Dosage: STARTED 3 YRS AGO
     Route: 042

REACTIONS (4)
  - DIZZINESS [None]
  - WEIGHT DECREASED [None]
  - HYPERTENSION [None]
  - OROPHARYNGEAL PAIN [None]
